FAERS Safety Report 6093280-0 (Version None)
Quarter: 2009Q1

REPORT INFORMATION
  Report Type: 
  Country: None (occurrence: None)
  Receive Date: 20090226
  Receipt Date: 20090219
  Transmission Date: 20090719
  Serious: Yes (Hospitalization)
  Sender: FDA-Public Use
  Company Number: DK-NOVOPROD-284377

PATIENT
  Sex: Female

DRUGS (1)
  1. NORDITROPIN NORDIFLEX [Suspect]
     Indication: PRADER-WILLI SYNDROME
     Dosage: 1 MG, QD
     Route: 058
     Dates: start: 19990704, end: 20011114

REACTIONS (1)
  - URINARY TRACT INFECTION [None]
